FAERS Safety Report 6741061-4 (Version None)
Quarter: 2010Q2

REPORT INFORMATION
  Report Type: 
  Country: None (occurrence: None)
  Receive Date: 20100526
  Receipt Date: 20100514
  Transmission Date: 20101027
  Serious: Yes (Other)
  Sender: FDA-Public Use
  Company Number: US-JNJFOC-20100505935

PATIENT
  Age: 78 Year
  Sex: Male
  Weight: 86.18 kg

DRUGS (6)
  1. EXTRA STRENGTH TYLENOL PM [Suspect]
     Route: 048
  2. EXTRA STRENGTH TYLENOL PM [Suspect]
     Indication: INSOMNIA
     Dosage: 'STARTED OUT TAKING 2 CAPLETS AS DIRECTED,BUT RECENTLY HE SWITCHED TO TAKING ONE PILL' EVERY NIGHT.
     Route: 048
  3. ZOCOR [Concomitant]
     Route: 065
  4. ACCUPRIL [Concomitant]
     Indication: CARDIAC DISORDER
     Route: 065
  5. PLAVIX [Concomitant]
     Indication: CARDIAC DISORDER
     Route: 065
  6. METOPROLOL [Concomitant]
     Indication: BLOOD PRESSURE
     Route: 065

REACTIONS (2)
  - DEPENDENCE [None]
  - PRODUCT QUALITY ISSUE [None]
